FAERS Safety Report 10370488 (Version 1)
Quarter: 2014Q1

REPORT INFORMATION
  Report Type: Spontaneous
  Country: US (occurrence: None)
  Receive Date: 20140306
  Receipt Date: 20140306
  Transmission Date: 20141002
  Serious: Yes (Disabling)
  Sender: FDA-Public Use
  Company Number: 163-21880-13090240

PATIENT
  Age: 90 Year
  Sex: Female

DRUGS (4)
  1. REVLIMID [Suspect]
     Indication: PLASMA CELL MYELOMA
     Dosage: 5 MG, 14 IN 14 D, PO
     Route: 048
     Dates: start: 201202, end: 201309
  2. ARICEPT (DONEPEZIL HYDROCHLORIDE) (UNKNOWN) [Concomitant]
  3. GABAPENTIN (GABAPENTIN) (UNKNOWN) (GABAPENTIN) [Concomitant]
  4. DETROL (TOLTERODINE L-TARTRATE) (UNKNOWN) [Concomitant]

REACTIONS (2)
  - Malaise [None]
  - Asthenia [None]
